FAERS Safety Report 14501926 (Version 1)
Quarter: 2018Q1

REPORT INFORMATION
  Report Type: Spontaneous
  Country: TW (occurrence: TW)
  Receive Date: 20180208
  Receipt Date: 20180208
  Transmission Date: 20180509
  Serious: Yes (Hospitalization, Other)
  Sender: FDA-Public Use
  Company Number: TW-ABBVIE-18K-153-2246336-00

PATIENT
  Age: 82 Year
  Sex: Male

DRUGS (1)
  1. HUMIRA [Suspect]
     Active Substance: ADALIMUMAB
     Indication: RHEUMATOID ARTHRITIS
     Route: 058

REACTIONS (33)
  - Tumour haemorrhage [Unknown]
  - Lymphadenopathy [Unknown]
  - Renal cyst [Unknown]
  - Tachycardia [Unknown]
  - Productive cough [Not Recovered/Not Resolved]
  - Intestinal ischaemia [Unknown]
  - Deep vein thrombosis [Unknown]
  - Red blood cell sedimentation rate increased [Unknown]
  - Sepsis [Unknown]
  - Vena cava thrombosis [Unknown]
  - Cholecystitis chronic [Unknown]
  - Pneumothorax [Unknown]
  - Blood albumin decreased [Unknown]
  - White blood cell count increased [Unknown]
  - Haemoglobin decreased [Unknown]
  - Malaise [Unknown]
  - Oedema peripheral [Unknown]
  - Ascites [Unknown]
  - Somnolence [Unknown]
  - Gastrointestinal haemorrhage [Unknown]
  - Cytomegalovirus infection [Unknown]
  - Cough [Recovering/Resolving]
  - Haematochezia [Unknown]
  - Cholelithiasis [Unknown]
  - Hypotension [Unknown]
  - Oxygen saturation decreased [Unknown]
  - Colon cancer [Unknown]
  - Pleural effusion [Unknown]
  - Decreased appetite [Unknown]
  - Colitis [Unknown]
  - Large intestine polyp [Unknown]
  - Blood lactic acid increased [Unknown]
  - Blood creatinine increased [Unknown]

NARRATIVE: CASE EVENT DATE: 201801
